FAERS Safety Report 4565687-1 (Version None)
Quarter: 2005Q1

REPORT INFORMATION
  Report Type: 
  Country: None (occurrence: None)
  Receive Date: 20050126
  Receipt Date: 20040106
  Transmission Date: 20050727
  Serious: Yes (Hospitalization, Other)
  Sender: FDA-Public Use
  Company Number: 20050100003

PATIENT
  Age: 25 Year
  Sex: Male

DRUGS (2)
  1. REGLAN [Suspect]
     Indication: PROPHYLAXIS OF NAUSEA AND VOMITING
     Dosage: 10 MG ONCE IV
     Route: 042
     Dates: start: 20050105, end: 20050105
  2. ANTIBIOTIC [Concomitant]

REACTIONS (4)
  - ABDOMINAL PAIN UPPER [None]
  - HYPERTENSION [None]
  - MYOCARDIAL INFARCTION [None]
  - RASH [None]
